FAERS Safety Report 8667892 (Version 3)
Quarter: 2012Q4

REPORT INFORMATION
  Report Type: 
  Country: US (occurrence: US)
  Receive Date: 20120717
  Receipt Date: 20120904
  Transmission Date: 20130627
  Serious: Yes (Hospitalization)
  Sender: FDA-Public Use
  Company Number: US-JNJFOC-20120704320

PATIENT
  Age: 65 Year
  Sex: Female
  Weight: 72.58 kg

DRUGS (13)
  1. NUCYNTA [Suspect]
     Indication: PROCEDURAL PAIN
     Dosage: twice daily
     Route: 048
     Dates: start: 20120311, end: 20120618
  2. NUCYNTA [Suspect]
     Indication: PROCEDURAL PAIN
     Dosage: twice daily
     Route: 048
     Dates: start: 20120706, end: 20120815
  3. NUCYNTA [Suspect]
     Indication: PROCEDURAL PAIN
     Dosage: 3 times daily
     Route: 048
     Dates: start: 20120615, end: 20120619
  4. NUCYNTA [Suspect]
     Indication: NEURALGIA
     Dosage: twice daily
     Route: 048
     Dates: start: 20120311, end: 20120618
  5. NUCYNTA [Suspect]
     Indication: NEURALGIA
     Dosage: 3 times daily
     Route: 048
     Dates: start: 20120615, end: 20120619
  6. NUCYNTA [Suspect]
     Indication: NEURALGIA
     Dosage: twice daily
     Route: 048
     Dates: start: 20120706, end: 20120815
  7. MORPHINE [Suspect]
     Indication: PROCEDURAL PAIN
     Route: 042
     Dates: start: 20120614, end: 20120616
  8. VICODIN [Suspect]
     Indication: PROCEDURAL PAIN
     Route: 048
     Dates: start: 20120615, end: 20120617
  9. OXYCODONE APAP [Suspect]
     Indication: PROCEDURAL PAIN
     Dosage: 5/325mg daily as needed
     Route: 048
     Dates: start: 20120615, end: 20120619
  10. PERCOCET [Suspect]
     Indication: PROCEDURAL PAIN
     Dosage: 7.5/3.25mg  2 pills every 4-6 hours
     Route: 048
     Dates: start: 20120616, end: 20120617
  11. CELEXA [Concomitant]
     Indication: DEPRESSION
     Route: 048
     Dates: start: 2002
  12. XANAX [Concomitant]
     Indication: ANXIETY
     Route: 048
     Dates: start: 2002
  13. TOPIRAMATE [Concomitant]
     Indication: NERVOUS SYSTEM DISORDER
     Route: 048
     Dates: start: 2012

REACTIONS (9)
  - Hallucination [Recovered/Resolved]
  - Delusion [Recovered/Resolved]
  - Urinary tract infection [Recovered/Resolved]
  - Spinal fusion surgery [Recovered/Resolved]
  - Dyskinesia [Recovered/Resolved]
  - Incoherent [Recovered/Resolved]
  - Procedural complication [Recovered/Resolved]
  - Restlessness [Recovered/Resolved]
  - Insomnia [Recovered/Resolved]
